FAERS Safety Report 9691361 (Version 1)
Quarter: 2013Q4

REPORT INFORMATION
  Report Type: Spontaneous
  Country: US (occurrence: US)
  Receive Date: 20131115
  Receipt Date: 20131115
  Transmission Date: 20140711
  Serious: No
  Sender: FDA-Public Use
  Company Number: US-PFIZER INC-2013321217

PATIENT
  Age: 68 Year
  Sex: Female

DRUGS (2)
  1. RAMIPRIL [Suspect]
     Indication: BLOOD PRESSURE
     Dosage: UNK
  2. BYSTOLIC [Suspect]
     Indication: BLOOD PRESSURE
     Dosage: UNK

REACTIONS (3)
  - Malaise [Unknown]
  - Cough [Unknown]
  - Drug hypersensitivity [Unknown]
